FAERS Safety Report 22376331 (Version 2)
Quarter: 2023Q2

REPORT INFORMATION
  Report Type: Spontaneous
  Country: CN (occurrence: CN)
  Receive Date: 20230527
  Receipt Date: 20230605
  Transmission Date: 20230722
  Serious: Yes (Life-Threatening, Hospitalization)
  Sender: FDA-Public Use
  Company Number: CN-002147023-NVSC2023CN121273

PATIENT
  Age: 66 Year
  Sex: Female
  Weight: 50 kg

DRUGS (6)
  1. OXCARBAZEPINE [Suspect]
     Active Substance: OXCARBAZEPINE
     Indication: Intracranial aneurysm
     Dosage: 1 DOSAGE FORM, BID
     Route: 048
     Dates: start: 20230427, end: 20230511
  2. NIMODIPINE [Concomitant]
     Active Substance: NIMODIPINE
     Indication: Intracranial aneurysm
     Dosage: 1 DOSAGE FORM, TID
     Route: 048
     Dates: start: 20230427, end: 20230511
  3. CLOPIDOGREL [Concomitant]
     Active Substance: CLOPIDOGREL BISULFATE
     Indication: Product used for unknown indication
     Dosage: 1 DOSAGE FORM, QD
     Route: 048
     Dates: start: 20230427, end: 20230511
  4. AMLODIPINE BESYLATE [Concomitant]
     Active Substance: AMLODIPINE BESYLATE
     Indication: Intracranial aneurysm
     Dosage: 1 DOSAGE FORM, QD
     Route: 048
     Dates: start: 20230427, end: 20230511
  5. ATORVASTATIN CALCIUM [Concomitant]
     Active Substance: ATORVASTATIN CALCIUM
     Indication: Intracranial aneurysm
     Dosage: 1 DOSAGE FORM, QD
     Route: 048
     Dates: start: 20230427, end: 20230511
  6. ASPIRIN [Concomitant]
     Active Substance: ASPIRIN
     Indication: Product used for unknown indication
     Dosage: UNK
     Route: 065
     Dates: start: 20230427

REACTIONS (11)
  - Dermatitis exfoliative [Recovering/Resolving]
  - Temperature intolerance [Recovering/Resolving]
  - Vision blurred [Recovering/Resolving]
  - Pyrexia [Recovering/Resolving]
  - Erythema [Recovering/Resolving]
  - Pruritus [Recovering/Resolving]
  - Conjunctival hyperaemia [Recovering/Resolving]
  - Effusion [Recovering/Resolving]
  - Dysphagia [Recovering/Resolving]
  - Mucosal erosion [Recovering/Resolving]
  - Eye discharge [Recovering/Resolving]

NARRATIVE: CASE EVENT DATE: 20230511
